FAERS Safety Report 10597083 (Version 1)
Quarter: 2014Q4

REPORT INFORMATION
  Report Type: Spontaneous
  Country: GB (occurrence: GB)
  Receive Date: 20141121
  Receipt Date: 20141121
  Transmission Date: 20150529
  Serious: Yes (Hospitalization, Other)
  Sender: FDA-Public Use
  Company Number: GB-ACCORD-027128

PATIENT
  Age: 68 Year
  Sex: Female

DRUGS (12)
  1. RAMIPRIL. [Concomitant]
     Active Substance: RAMIPRIL
  2. ALENDRONATE SODIUM/ALENDRONIC ACID [Concomitant]
     Dosage: ONCE A WEEK ON THURSDAYS
  3. CLINITAS EYE DROPS [Concomitant]
  4. PREDNISOLONE. [Suspect]
     Active Substance: PREDNISOLONE
     Indication: PRODUCT USED FOR UNKNOWN INDICATION
     Dosage: REDUCING DOSE
  5. FOLIC ACID. [Concomitant]
     Active Substance: FOLIC ACID
     Dosage: EVERY DAY EXCEPT TUESDAYS
  6. BENDROFLUMETHIAZIDE [Concomitant]
     Active Substance: BENDROFLUMETHIAZIDE
  7. FUROSEMIDE. [Concomitant]
     Active Substance: FUROSEMIDE
  8. THIAMINE/THIAMINE BETA/HYDROXYETHYLDISU/THIAMINE DISULFIDE/THIAMINE HYDROCHLORIDE/THIAMINE MONONITRA [Concomitant]
  9. PIROXICAM. [Concomitant]
     Active Substance: PIROXICAM
  10. ADCAL-D3 [Concomitant]
     Active Substance: CALCIUM CARBONATE\CHOLECALCIFEROL
     Route: 048
  11. METHOTREXATE [Suspect]
     Active Substance: METHOTREXATE
     Indication: VASCULITIS
     Dosage: ONCE A WEEK ON TUESDAYS
     Route: 048
     Dates: start: 20141021
  12. LANSOPRAZOLE. [Concomitant]
     Active Substance: LANSOPRAZOLE

REACTIONS (4)
  - Body temperature increased [Recovering/Resolving]
  - Hypotension [Recovering/Resolving]
  - Urosepsis [Recovering/Resolving]
  - Chills [Recovering/Resolving]

NARRATIVE: CASE EVENT DATE: 20141102
